FAERS Safety Report 13925851 (Version 1)
Quarter: 2017Q3

REPORT INFORMATION
  Report Type: Spontaneous
  Country: US (occurrence: US)
  Receive Date: 20170831
  Receipt Date: 20170831
  Transmission Date: 20171127
  Serious: Yes (Hospitalization, Other)
  Sender: FDA-Public Use
  Company Number: US-CIPLA LTD.-2017US15170

PATIENT

DRUGS (5)
  1. SALMETEROL [Suspect]
     Active Substance: SALMETEROL
     Indication: ASPIRATION BRONCHIAL
     Dosage: UNK
     Route: 065
  2. LEVOFLOXACIN. [Suspect]
     Active Substance: LEVOFLOXACIN
     Indication: ASPIRATION BRONCHIAL
     Dosage: UNK
     Route: 065
  3. CARBOPLATIN. [Suspect]
     Active Substance: CARBOPLATIN
     Dosage: UNK, WEEKLY
     Route: 065
  4. PACLITAXEL. [Suspect]
     Active Substance: PACLITAXEL
     Dosage: UNK, WEEKLY
     Route: 065
  5. BECLOMETHASONE [Suspect]
     Active Substance: BECLOMETHASONE
     Indication: ASPIRATION BRONCHIAL
     Dosage: UNK

REACTIONS (9)
  - Condition aggravated [Unknown]
  - Productive cough [Unknown]
  - Oesophagobronchial fistula [Recovered/Resolved]
  - Breath sounds abnormal [Unknown]
  - Drug ineffective [Unknown]
  - Dyspnoea [Unknown]
  - Pyrexia [Unknown]
  - Haemoptysis [Recovered/Resolved]
  - Oesophageal achalasia [Unknown]
